FAERS Safety Report 6655088-4 (Version None)
Quarter: 2010Q1

REPORT INFORMATION
  Report Type: 
  Country: None (occurrence: None)
  Receive Date: 20100329
  Receipt Date: 20100303
  Transmission Date: 20100710
  Serious: Yes (Other)
  Sender: FDA-Public Use
  Company Number: FR-CEPHALON-2010001720

PATIENT
  Sex: Male

DRUGS (2)
  1. TREANDA [Suspect]
     Indication: NON-HODGKIN'S LYMPHOMA
     Dates: start: 20090122, end: 20090612
  2. MABTHERA [Suspect]
     Indication: NON-HODGKIN'S LYMPHOMA

REACTIONS (3)
  - FISTULA [None]
  - OSTEONECROSIS [None]
  - THROMBOCYTOPENIA [None]
